FAERS Safety Report 18998011 (Version 1)
Quarter: 2021Q1

REPORT INFORMATION
  Report Type: Spontaneous
  Country: BR (occurrence: BR)
  Receive Date: 20210311
  Receipt Date: 20210311
  Transmission Date: 20210420
  Serious: Yes (Other)
  Sender: FDA-Public Use
  Company Number: BR-AMERICAN REGENT INC-2021000571

PATIENT
  Sex: Female

DRUGS (1)
  1. VENOFER [Suspect]
     Active Substance: IRON SUCROSE
     Indication: ANAEMIA
     Dosage: UNK, FOUR TIMES A WEEK
     Route: 042

REACTIONS (5)
  - Product availability issue [Unknown]
  - Oral mucosal discolouration [Unknown]
  - Dyspnoea [Unknown]
  - Drug dependence [Unknown]
  - Asthenia [Unknown]
